FAERS Safety Report 19755693 (Version 2)
Quarter: 2022Q3

REPORT INFORMATION
  Report Type: Spontaneous
  Country: MY (occurrence: MY)
  Receive Date: 20210827
  Receipt Date: 20220704
  Transmission Date: 20221027
  Serious: Yes (Hospitalization, Other)
  Sender: FDA-Public Use
  Company Number: MY-NOVARTISPH-NVSC2021MY171546

PATIENT
  Age: 77 Year
  Sex: Male

DRUGS (11)
  1. BROLUCIZUMAB [Suspect]
     Active Substance: BROLUCIZUMAB
     Indication: Neovascular age-related macular degeneration
     Dosage: UNK
     Route: 031
     Dates: start: 20210312
  2. BROLUCIZUMAB [Suspect]
     Active Substance: BROLUCIZUMAB
     Indication: Polypoidal choroidal vasculopathy
     Dosage: UNK
     Route: 031
     Dates: start: 20210416
  3. BROLUCIZUMAB [Suspect]
     Active Substance: BROLUCIZUMAB
     Dosage: UNK
     Route: 031
     Dates: start: 20210531
  4. BROLUCIZUMAB [Suspect]
     Active Substance: BROLUCIZUMAB
     Dosage: UNK
     Route: 031
     Dates: start: 20210628
  5. BROLUCIZUMAB [Suspect]
     Active Substance: BROLUCIZUMAB
     Dosage: UNK
     Route: 031
     Dates: start: 20210219
  6. BROLUCIZUMAB [Suspect]
     Active Substance: BROLUCIZUMAB
     Dosage: 6 MG (0.05 ML), PRN
     Route: 031
     Dates: start: 20210726
  7. BROLUCIZUMAB [Suspect]
     Active Substance: BROLUCIZUMAB
     Dosage: UNK UNK, QMO
     Route: 031
  8. LOSARTAN [Concomitant]
     Active Substance: LOSARTAN
     Indication: Product used for unknown indication
     Dosage: 50 MG, QD
     Route: 065
  9. ASPIRIN [Concomitant]
     Active Substance: ASPIRIN
     Indication: Product used for unknown indication
     Dosage: 100 MG, QD
     Route: 065
  10. SIMVASTATIN [Concomitant]
     Active Substance: SIMVASTATIN
     Indication: Product used for unknown indication
     Dosage: 20 MG, QD
     Route: 065
  11. GLICLAZIDE [Concomitant]
     Active Substance: GLICLAZIDE
     Indication: Product used for unknown indication
     Dosage: 60 MG, QD
     Route: 065

REACTIONS (15)
  - Endophthalmitis [Recovered/Resolved]
  - Hypopyon [Unknown]
  - Vision blurred [Recovered/Resolved]
  - Vitreous abscess [Unknown]
  - Eye pain [Recovered/Resolved]
  - Blindness transient [Recovering/Resolving]
  - Macular fibrosis [Unknown]
  - Vitreous detachment [Unknown]
  - Vitritis [Unknown]
  - Vitreous floaters [Unknown]
  - Visual impairment [Recovering/Resolving]
  - Endophthalmitis [Recovered/Resolved]
  - Vision blurred [Recovered/Resolved]
  - Swelling of eyelid [Unknown]
  - Eye pain [Recovered/Resolved]

NARRATIVE: CASE EVENT DATE: 20210727
